FAERS Safety Report 4634122-7 (Version None)
Quarter: 2005Q2

REPORT INFORMATION
  Report Type: 
  Country: None (occurrence: None)
  Receive Date: 20050413
  Receipt Date: 20050407
  Transmission Date: 20051028
  Serious: Yes (Death)
  Sender: FDA-Public Use
  Company Number: 2005-UK-00548UK

PATIENT
  Sex: Male

DRUGS (7)
  1. SALBUTAMOL [Suspect]
     Route: 065
  2. SEREVENT [Suspect]
     Route: 065
  3. ATROVENT [Suspect]
     Route: 065
  4. CARBAMAZEPINE [Suspect]
     Dosage: 200MG TWICE PER DAY
     Route: 065
  5. CARBOCISTEINE [Suspect]
     Route: 065
  6. FRUSENE [Suspect]
     Dosage: 40MG UNKNOWN
     Route: 065
  7. OXYGEN [Suspect]
     Route: 065

REACTIONS (2)
  - CHRONIC OBSTRUCTIVE PULMONARY DISEASE [None]
  - PNEUMONIA [None]
